FAERS Safety Report 8273555-7 (Version None)
Quarter: 2012Q2

REPORT INFORMATION
  Report Type: 
  Country: None (occurrence: None)
  Receive Date: 20120411
  Receipt Date: 20120106
  Transmission Date: 20120825
  Serious: No
  Sender: FDA-Public Use
  Company Number: US-TEVA-316679USA

PATIENT
  Sex: Male
  Weight: 108.96 kg

DRUGS (1)
  1. NUVIGIL [Suspect]
     Indication: HYPERSOMNIA
     Dosage: 250 MILLIGRAM;
     Route: 048
     Dates: start: 20120105

REACTIONS (3)
  - DIZZINESS [None]
  - PARAESTHESIA [None]
  - DRUG PRESCRIBING ERROR [None]
